FAERS Safety Report 20755428 (Version 2)
Quarter: 2022Q3

REPORT INFORMATION
  Report Type: Spontaneous
  Country: US (occurrence: US)
  Receive Date: 20220427
  Receipt Date: 20220725
  Transmission Date: 20221027
  Serious: Yes (Hospitalization, Other)
  Sender: FDA-Public Use
  Company Number: US-BRISTOL-MYERS SQUIBB COMPANY-2022-027621

PATIENT
  Age: 89 Year
  Sex: Female

DRUGS (2)
  1. ORENCIA [Suspect]
     Active Substance: ABATACEPT
     Indication: Product used for unknown indication
     Dosage: DOSE: 125 MG/ML, 4-PFS - INJECT 125MG (1 SYRINGE) SUBCUTANEOUSLY ONCE A WEEK.(STORE IN REFRIGERATOR
     Route: 058
     Dates: end: 20220718
  2. ORENCIA [Suspect]
     Active Substance: ABATACEPT

REACTIONS (2)
  - Pneumonia [Unknown]
  - Injury [Unknown]

NARRATIVE: CASE EVENT DATE: 20220718
